FAERS Safety Report 5391912-3 (Version None)
Quarter: 2007Q3

REPORT INFORMATION
  Report Type: 
  Country: None (occurrence: None)
  Receive Date: 20070720
  Receipt Date: 20070710
  Transmission Date: 20080115
  Serious: Yes (Death)
  Sender: FDA-Public Use
  Company Number: JP-JNJFOC-20070702942

PATIENT
  Age: 2 Year
  Sex: Male
  Weight: 7 kg

DRUGS (4)
  1. REMICADE [Suspect]
     Route: 042
  2. REMICADE [Suspect]
     Indication: CROHN'S DISEASE
     Route: 042
  3. PREDONINE [Concomitant]
  4. PENTASA [Concomitant]

REACTIONS (2)
  - CATHETER RELATED INFECTION [None]
  - CEREBRAL HAEMORRHAGE [None]
